FAERS Safety Report 10162428 (Version 1)
Quarter: 2014Q2

REPORT INFORMATION
  Report Type: Report from Study
  Country: JP (occurrence: JP)
  Receive Date: 20140509
  Receipt Date: 20140509
  Transmission Date: 20141212
  Serious: Yes (Hospitalization)
  Sender: FDA-Public Use
  Company Number: JP-ELI_LILLY_AND_COMPANY-JP201405000081

PATIENT
  Age: 64 Year
  Sex: Male
  Weight: 50.9 kg

DRUGS (3)
  1. RAMUCIRUMAB [Suspect]
     Indication: NON-SMALL CELL LUNG CANCER STAGE IV
     Dosage: UNK
     Route: 042
     Dates: start: 20140326
  2. DOCETAXEL [Suspect]
     Indication: NON-SMALL CELL LUNG CANCER STAGE IV
     Dosage: UNK
     Route: 042
     Dates: start: 20140326
  3. GLYCOPYRRONIUM BROMIDE [Concomitant]
     Indication: EMPHYSEMA
     Dosage: 1 DF, QD
     Route: 045
     Dates: start: 20140327

REACTIONS (2)
  - Febrile neutropenia [Recovering/Resolving]
  - Decreased appetite [Recovering/Resolving]
